FAERS Safety Report 4637168-8 (Version None)
Quarter: 2005Q2

REPORT INFORMATION
  Report Type: 
  Country: None (occurrence: None)
  Receive Date: 20050325
  Receipt Date: 20041202
  Transmission Date: 20051028
  Serious: No
  Sender: FDA-Public Use
  Company Number: USA040978383

PATIENT
  Age: 65 Year
  Sex: Female

DRUGS (3)
  1. FORTEO [Suspect]
     Indication: OSTEOPOROSIS
     Dates: start: 20040913
  2. CALCIUM GLUCONATE [Concomitant]
  3. INFLUENZA VACCINE [Concomitant]

REACTIONS (6)
  - ARTHRALGIA [None]
  - DIFFICULTY IN WALKING [None]
  - HEADACHE [None]
  - INJECTION SITE HAEMORRHAGE [None]
  - PAIN [None]
  - PAIN IN EXTREMITY [None]
